FAERS Safety Report 8954254 (Version 1)
Quarter: 2012Q4

REPORT INFORMATION
  Report Type: 
  Country: US (occurrence: US)
  Receive Date: 20121207
  Receipt Date: 20121207
  Transmission Date: 20130627
  Serious: Yes (Hospitalization)
  Sender: FDA-Public Use
  Company Number: PHHO2012US017475

PATIENT
  Sex: Male
  Weight: 86.6 kg

DRUGS (3)
  1. AFINITOR [Suspect]
     Indication: METASTATIC NEOPLASM
     Dosage: 60 mg, UNK
     Dates: start: 20121030
  2. CARBOPLATIN [Suspect]
     Indication: METASTATIC NEOPLASM
     Dosage: 553 mg, UNK
  3. PACLITAXEL [Suspect]
     Indication: METASTATIC NEOPLASM
     Dosage: 369 mg, UNK

REACTIONS (2)
  - Lung infection [Recovered/Resolved]
  - Constipation [Recovered/Resolved]
